FAERS Safety Report 20578207 (Version 1)
Quarter: 2022Q1

REPORT INFORMATION
  Report Type: Report from Study
  Country: US (occurrence: US)
  Receive Date: 20220310
  Receipt Date: 20220310
  Transmission Date: 20220423
  Serious: Yes (Death, Life-Threatening, Other)
  Sender: FDA-Public Use
  Company Number: US-BAYER-2020-246321

PATIENT
  Age: 30 Year
  Sex: Male

DRUGS (9)
  1. ALPRAZOLAM [Interacting]
     Active Substance: ALPRAZOLAM
     Dosage: UNK
  2. LORAZEPAM [Interacting]
     Active Substance: LORAZEPAM
     Dosage: UNK
  3. FENTANYL CITRATE [Interacting]
     Active Substance: FENTANYL CITRATE
     Dosage: UNK
  4. ETIZOLAM [Interacting]
     Active Substance: ETIZOLAM
     Dosage: UNK
  5. DELORAZEPAM [Interacting]
     Active Substance: DELORAZEPAM
     Dosage: UNK
  6. FLUBROMAZOLAM [Interacting]
     Active Substance: FLUBROMAZOLAM
     Dosage: UNK
  7. LAMOTRIGINE [Concomitant]
     Active Substance: LAMOTRIGINE
     Dosage: UNK
  8. AMPHETAMINE [Concomitant]
     Active Substance: AMPHETAMINE
     Dosage: UNK
  9. METHAMPHETAMINE [Concomitant]
     Active Substance: METHAMPHETAMINE
     Dosage: UNK

REACTIONS (4)
  - Drug interaction [Fatal]
  - Alcohol interaction [Fatal]
  - Toxicity to various agents [Fatal]
  - Respiratory depression [Fatal]

NARRATIVE: CASE EVENT DATE: 20190901
